FAERS Safety Report 25685465 (Version 1)
Quarter: 2025Q3

REPORT INFORMATION
  Report Type: Spontaneous
  Country: EU (occurrence: EU)
  Receive Date: 20250815
  Receipt Date: 20250815
  Transmission Date: 20251020
  Serious: Yes (Death, Life-Threatening, Other)
  Sender: PFIZER
  Company Number: EU-ORPHADEVEL-2025001746

PATIENT
  Age: 57 Year
  Sex: Male

DRUGS (9)
  1. DOBUTAMINE HYDROCHLORIDE [Suspect]
     Active Substance: DOBUTAMINE HYDROCHLORIDE
     Indication: Ventricular dysfunction
  2. VASOPRESSIN [Suspect]
     Active Substance: VASOPRESSIN
     Indication: Septic shock
  3. NOREPINEPHRINE [Suspect]
     Active Substance: NOREPINEPHRINE
     Indication: Septic shock
  4. NOREPINEPHRINE [Suspect]
     Active Substance: NOREPINEPHRINE
     Indication: Ventricular dysfunction
  5. HYDROCORTISONE [Concomitant]
     Active Substance: HYDROCORTISONE
     Indication: Septic shock
     Dosage: 200 MG, 1X/DAY
  6. MEROPENEM [Concomitant]
     Active Substance: MEROPENEM
     Indication: Staphylococcal bacteraemia
  7. CLOXACILLIN [Concomitant]
     Active Substance: CLOXACILLIN
     Indication: Staphylococcal bacteraemia
  8. DAPTOMYCIN [Concomitant]
     Active Substance: DAPTOMYCIN
     Indication: Staphylococcal bacteraemia
  9. PIPERACILLIN SODIUM\TAZOBACTAM SODIUM [Concomitant]
     Active Substance: PIPERACILLIN SODIUM\TAZOBACTAM SODIUM
     Indication: Pseudomonas infection

REACTIONS (11)
  - Multiple organ dysfunction syndrome [Fatal]
  - Pseudomonas infection [Fatal]
  - Endocarditis [Unknown]
  - Acute respiratory failure [Unknown]
  - Acute pulmonary oedema [Unknown]
  - Mitral valve incompetence [Unknown]
  - Chordae tendinae rupture [Unknown]
  - Cardiac valve rupture [Unknown]
  - Ventricular dysfunction [Unknown]
  - Endophthalmitis [Recovered/Resolved]
  - Systemic candida [Recovered/Resolved]
